FAERS Safety Report 4751064-7 (Version None)
Quarter: 2005Q3

REPORT INFORMATION
  Report Type: 
  Country: None (occurrence: None)
  Receive Date: 20050822
  Receipt Date: 20050812
  Transmission Date: 20060218
  Serious: Yes (Other)
  Sender: FDA-Public Use
  Company Number: 2005115147

PATIENT
  Age: 69 Year
  Sex: Female
  Weight: 113.3993 kg

DRUGS (4)
  1. LIPITOR [Suspect]
     Indication: BLOOD CHOLESTEROL INCREASED
     Dosage: 10 MG (10 MG, 1 IN 1 D),
     Dates: start: 20040614, end: 20040815
  2. LEVOTHYROXINE SODIUM [Concomitant]
  3. AMILORIDE (AMILORIDE) [Concomitant]
  4. ATENOLOL [Concomitant]

REACTIONS (6)
  - ABDOMINAL DISTENSION [None]
  - DIFFICULTY IN WALKING [None]
  - HEART RATE INCREASED [None]
  - HYPOAESTHESIA [None]
  - PLATELET COUNT DECREASED [None]
  - UTERINE POLYP [None]
